FAERS Safety Report 12213395 (Version 1)
Quarter: 2016Q1

REPORT INFORMATION
  Report Type: Report from Study
  Country: US (occurrence: US)
  Receive Date: 20160328
  Receipt Date: 20160328
  Transmission Date: 20160526
  Serious: Yes (Other)
  Sender: FDA-Public Use
  Company Number: US-BAYER-2015-492910

PATIENT
  Age: 55 Year
  Sex: Female
  Weight: 97.7 kg

DRUGS (8)
  1. REGORAFENIB [Suspect]
     Active Substance: REGORAFENIB
     Indication: PERITONEAL CARCINOMA METASTATIC
     Dosage: DAILY DOSE 60 MG
     Route: 048
     Dates: start: 20150818, end: 20151217
  2. REFAMETINIB [Suspect]
     Active Substance: REFAMETINIB
     Indication: PERITONEAL CARCINOMA METASTATIC
     Dosage: 20 MG, BID
     Route: 048
     Dates: start: 20150331, end: 20150721
  3. REGORAFENIB [Suspect]
     Active Substance: REGORAFENIB
     Indication: PERITONEAL CARCINOMA METASTATIC
     Dosage: DAILY DOSE 60 MG
     Route: 048
     Dates: start: 20160111
  4. REFAMETINIB [Suspect]
     Active Substance: REFAMETINIB
     Indication: PERITONEAL CARCINOMA METASTATIC
     Dosage: 20 MG, BID
     Route: 048
     Dates: start: 20160111
  5. REFAMETINIB [Suspect]
     Active Substance: REFAMETINIB
     Indication: PERITONEAL CARCINOMA METASTATIC
     Dosage: 20 MG, BID
     Route: 048
     Dates: start: 20150718, end: 20151217
  6. REGORAFENIB [Suspect]
     Active Substance: REGORAFENIB
     Indication: PERITONEAL CARCINOMA METASTATIC
     Dosage: DAILY DOSE 80 MG
     Route: 048
     Dates: start: 20150526, end: 20150713
  7. REGORAFENIB [Suspect]
     Active Substance: REGORAFENIB
     Indication: PERITONEAL CARCINOMA METASTATIC
     Dosage: DAILY DOSE 120 MG
     Route: 048
     Dates: start: 20150331, end: 20150518
  8. REGORAFENIB [Suspect]
     Active Substance: REGORAFENIB
     Indication: PERITONEAL CARCINOMA METASTATIC
     Dosage: DAILY DOSE 40 MG
     Route: 048
     Dates: start: 20150721, end: 20150810

REACTIONS (1)
  - Blood creatine phosphokinase increased [Recovered/Resolved]

NARRATIVE: CASE EVENT DATE: 20151218
